FAERS Safety Report 6208979-2 (Version None)
Quarter: 2009Q2

REPORT INFORMATION
  Report Type: 
  Country: None (occurrence: None)
  Receive Date: 20090529
  Receipt Date: 20090519
  Transmission Date: 20091009
  Serious: Yes (Hospitalization)
  Sender: FDA-Public Use
  Company Number: PHHY2009GB13315

PATIENT
  Sex: Female

DRUGS (5)
  1. CLOZARIL [Suspect]
     Indication: SCHIZOPHRENIA
     Dosage: UNK
     Route: 048
     Dates: start: 20030711, end: 20090403
  2. CLOZARIL [Suspect]
     Dosage: UNK
  3. FLUOXETINE HCL [Concomitant]
     Indication: DEPRESSED MOOD
     Dosage: 40 MG/DAY
     Route: 048
     Dates: start: 20060101
  4. ALBUTEROL [Concomitant]
  5. FLUTICASONE PROPIONATE [Concomitant]

REACTIONS (8)
  - ANTASTHMATIC DRUG LEVEL [None]
  - ASTHMA [None]
  - C-REACTIVE PROTEIN ABNORMAL [None]
  - HAEMATOCRIT ABNORMAL [None]
  - HAEMOGLOBIN ABNORMAL [None]
  - PCO2 ABNORMAL [None]
  - PO2 ABNORMAL [None]
  - RED BLOOD CELL SEDIMENTATION RATE ABNORMAL [None]
